FAERS Safety Report 23831916 (Version 1)
Quarter: 2024Q2

REPORT INFORMATION
  Report Type: Report from Study
  Country: AR (occurrence: AR)
  Receive Date: 20240508
  Receipt Date: 20240508
  Transmission Date: 20240715
  Serious: Yes (Death, Hospitalization)
  Sender: FDA-Public Use
  Company Number: AR-JNJFOC-20240515315

PATIENT
  Age: 67 Year
  Sex: Female
  Weight: 62 kg

DRUGS (6)
  1. SIMPONI [Suspect]
     Active Substance: GOLIMUMAB
     Indication: Rheumatoid arthritis
     Route: 041
     Dates: start: 20210708, end: 20240229
  2. SIMPONI [Suspect]
     Active Substance: GOLIMUMAB
     Route: 040
  3. BETAMETHASONE [Concomitant]
     Active Substance: BETAMETHASONE\BETAMETHASONE DIPROPIONATE
  4. METHOTREXATE [Concomitant]
     Active Substance: METHOTREXATE
  5. FOLIC ACID [Concomitant]
     Active Substance: FOLIC ACID
  6. ATORVASTATIN [Concomitant]
     Active Substance: ATORVASTATIN

REACTIONS (2)
  - Dengue fever [Fatal]
  - Urinary tract infection [Fatal]

NARRATIVE: CASE EVENT DATE: 20240412
